FAERS Safety Report 6380608-7 (Version None)
Quarter: 2009Q3

REPORT INFORMATION
  Report Type: 
  Country: None (occurrence: None)
  Receive Date: 20090929
  Receipt Date: 20090925
  Transmission Date: 20100115
  Serious: Yes (Hospitalization)
  Sender: FDA-Public Use
  Company Number: DE-JNJFOC-20090901834

PATIENT
  Age: 47 Year
  Sex: Male
  Weight: 100 kg

DRUGS (13)
  1. REMICADE [Suspect]
     Route: 042
     Dates: start: 20080201, end: 20090902
  2. REMICADE [Suspect]
     Indication: ANKYLOSING SPONDYLITIS
     Route: 042
     Dates: start: 20080201, end: 20090902
  3. SPIRIVA [Concomitant]
     Route: 055
  4. FORMATRIS [Concomitant]
     Route: 055
  5. PREDNISOLONE [Concomitant]
     Route: 048
  6. ARCOXIA [Concomitant]
  7. PALLADONE [Concomitant]
     Route: 048
  8. JURNISTA [Concomitant]
     Route: 048
  9. LYRICA [Concomitant]
     Route: 048
  10. OMEPRAZOLE [Concomitant]
     Route: 048
  11. CALCIUM CARBONATE [Concomitant]
     Route: 048
  12. DIAZEPAM [Concomitant]
  13. LACTULOSE [Concomitant]

REACTIONS (2)
  - HYPERSENSITIVITY [None]
  - INFUSION RELATED REACTION [None]
